FAERS Safety Report 4366847-5 (Version None)
Quarter: 2004Q2

REPORT INFORMATION
  Report Type: 
  Country: None (occurrence: None)
  Receive Date: 20040528
  Receipt Date: 20040130
  Transmission Date: 20050107
  Serious: No
  Sender: FDA-Public Use
  Company Number: 04011241

PATIENT
  Age: 55 Year
  Sex: Female

DRUGS (6)
  1. BACTROBAN [Suspect]
     Indication: SKIN LESION
     Route: 061
     Dates: start: 20040108
  2. DESONIDE [Suspect]
     Indication: SKIN LESION
     Route: 061
     Dates: start: 20040108
  3. ATENOLOL [Concomitant]
  4. COUMADIN [Concomitant]
  5. EFFEXOR [Concomitant]
  6. NEURONTIN [Concomitant]

REACTIONS (2)
  - BURNING SENSATION [None]
  - ERYTHEMA [None]
